FAERS Safety Report 6216862-1 (Version None)
Quarter: 2009Q2

REPORT INFORMATION
  Report Type: 
  Country: None (occurrence: None)
  Receive Date: 20090603
  Receipt Date: 20090603
  Transmission Date: 20091009
  Serious: Yes (Life-Threatening, Hospitalization)
  Sender: FDA-Public Use
  Company Number: None

PATIENT
  Sex: Female
  Weight: 97.0698 kg

DRUGS (1)
  1. TREXIMET [Suspect]
     Indication: HEADACHE
     Dosage: 1 TABLET AT ON SET OF HEADACHE 1 REPORT IN 2 HOURS
     Dates: start: 20081203

REACTIONS (11)
  - ABDOMINAL PAIN [None]
  - DEHYDRATION [None]
  - DRY MOUTH [None]
  - HAEMORRHOIDS [None]
  - MUSCLE SPASMS [None]
  - MYOCARDIAL INFARCTION [None]
  - PAIN [None]
  - PYREXIA [None]
  - RASH [None]
  - RENAL FAILURE [None]
  - VOMITING [None]
